FAERS Safety Report 5284431-6 (Version None)
Quarter: 2007Q1

REPORT INFORMATION
  Report Type: 
  Country: None (occurrence: None)
  Receive Date: 20070330
  Receipt Date: 20070330
  Transmission Date: 20070707
  Serious: Yes (Other)
  Sender: FDA-Public Use
  Company Number: None

PATIENT
  Age: 78 Year
  Sex: Female
  Weight: 58.5 kg

DRUGS (1)
  1. ZYVOX [Suspect]
     Indication: CELLULITIS
     Dosage: 600 MG Q12H IV
     Route: 042
     Dates: start: 20070308, end: 20070326

REACTIONS (2)
  - ANAEMIA [None]
  - THROMBOCYTOPENIA [None]
